FAERS Safety Report 6483937-1 (Version None)
Quarter: 2009Q4

REPORT INFORMATION
  Report Type: 
  Country: None (occurrence: None)
  Receive Date: 20091209
  Receipt Date: 20091201
  Transmission Date: 20100525
  Serious: Yes (Hospitalization, Other)
  Sender: FDA-Public Use
  Company Number: US-MERCK-0901USA03854

PATIENT
  Age: 49 Year
  Sex: Female

DRUGS (8)
  1. FOSAMAX [Suspect]
     Indication: OSTEOPOROSIS
     Route: 048
     Dates: start: 20050101, end: 20070201
  2. FOSAMAX PLUS D [Suspect]
     Indication: OSTEOPOROSIS
     Route: 048
     Dates: start: 20050901, end: 20070101
  3. DEPAKOTE [Concomitant]
     Indication: MIGRAINE PROPHYLAXIS
     Route: 065
     Dates: start: 20010101
  4. FOLIC ACID [Concomitant]
     Indication: VITAMIN SUPPLEMENTATION
     Route: 065
     Dates: start: 19960101
  5. IMITREX (SUMATRIPTAN SUCCINATE) [Concomitant]
     Indication: MIGRAINE
     Route: 065
     Dates: start: 19990101
  6. NEURONTIN [Concomitant]
     Indication: INSOMNIA
     Route: 065
     Dates: start: 20020101
  7. AREDIA [Concomitant]
     Indication: OSTEOPOROSIS
     Route: 065
     Dates: start: 20050101
  8. METHADONE HYDROCHLORIDE [Concomitant]
     Indication: PAIN
     Route: 065
     Dates: start: 20000101

REACTIONS (22)
  - APATHY [None]
  - BONE DISORDER [None]
  - BURNING SENSATION [None]
  - CHRONIC OBSTRUCTIVE PULMONARY DISEASE [None]
  - DENTAL CARIES [None]
  - DEPRESSION [None]
  - DRUG HYPERSENSITIVITY [None]
  - EDENTULOUS [None]
  - EMOTIONAL DISTRESS [None]
  - GALLBLADDER DISORDER [None]
  - GINGIVAL DISORDER [None]
  - GINGIVAL INFECTION [None]
  - HORMONE LEVEL ABNORMAL [None]
  - HYPOAESTHESIA [None]
  - INJURY [None]
  - IRRITABLE BOWEL SYNDROME [None]
  - OEDEMA MOUTH [None]
  - OSTEONECROSIS [None]
  - PAIN [None]
  - PARAESTHESIA [None]
  - RESTLESSNESS [None]
  - ROAD TRAFFIC ACCIDENT [None]
